FAERS Safety Report 6938119-3 (Version None)
Quarter: 2010Q3

REPORT INFORMATION
  Report Type: 
  Country: None (occurrence: None)
  Receive Date: 20100824
  Receipt Date: 20100812
  Transmission Date: 20110219
  Serious: Yes (Hospitalization, Disabling, Other)
  Sender: FDA-Public Use
  Company Number: BR-BAYER-201014395LA

PATIENT
  Age: 55 Year
  Sex: Female

DRUGS (8)
  1. BETAFERON [Interacting]
     Indication: MULTIPLE SCLEROSIS
     Dosage: BETAJECT
     Route: 058
     Dates: start: 19950101, end: 20091201
  2. BETAFERON [Interacting]
     Dosage: BETAJECT
     Route: 058
     Dates: end: 20100101
  3. MAREVAN [Interacting]
     Dosage: 1 TAB A DAY AND HALF ANOTHER DAY
     Dates: start: 20080101
  4. CORTISONE ACETATE [Suspect]
     Indication: MULTIPLE SCLEROSIS
     Route: 065
  5. DIOSMIN [Concomitant]
     Route: 065
     Dates: start: 20080101
  6. BOTOX [Concomitant]
     Indication: MUSCLE SPASMS
     Route: 065
     Dates: start: 20060101, end: 20091201
  7. REBATEN [Concomitant]
     Indication: BLOOD PRESSURE ABNORMAL
     Route: 048
     Dates: start: 20050101
  8. VYTORIN [Concomitant]
     Indication: BLOOD CHOLESTEROL INCREASED
     Route: 048
     Dates: start: 20080101

REACTIONS (12)
  - CHOLELITHIASIS [None]
  - GAIT DISTURBANCE [None]
  - HYPOAESTHESIA [None]
  - INTERNATIONAL NORMALISED RATIO ABNORMAL [None]
  - MULTIPLE SCLEROSIS [None]
  - MULTIPLE SCLEROSIS RELAPSE [None]
  - MUSCLE RIGIDITY [None]
  - OEDEMA PERIPHERAL [None]
  - PAIN IN EXTREMITY [None]
  - PULMONARY EMBOLISM [None]
  - RENAL PAIN [None]
  - THROMBOSIS [None]
